FAERS Safety Report 8130177-6 (Version None)
Quarter: 2012Q1

REPORT INFORMATION
  Report Type: 
  Country: None (occurrence: None)
  Receive Date: 20120210
  Receipt Date: 20120202
  Transmission Date: 20120608
  Serious: Yes (Hospitalization, Other)
  Sender: FDA-Public Use
  Company Number: US-ELI_LILLY_AND_COMPANY-US201110004500

PATIENT
  Sex: Male
  Weight: 95.238 kg

DRUGS (1)
  1. BYETTA [Suspect]
     Dosage: UNK UNK, UNKNOWN
     Route: 058

REACTIONS (5)
  - CHOLECYSTITIS ACUTE [None]
  - ATELECTASIS [None]
  - PANCREATITIS [None]
  - PNEUMONIA [None]
  - CLOSTRIDIUM DIFFICILE COLITIS [None]
